FAERS Safety Report 21361697 (Version 1)
Quarter: 2022Q3

REPORT INFORMATION
  Report Type: Spontaneous
  Country: DE (occurrence: DE)
  Receive Date: 20220921
  Receipt Date: 20220921
  Transmission Date: 20221027
  Serious: Yes (Hospitalization, Other)
  Sender: FDA-Public Use
  Company Number: DE-ADRED-05437-01

PATIENT
  Age: 74 Year
  Sex: Male

DRUGS (13)
  1. CYCLOSPORINE [Suspect]
     Active Substance: CYCLOSPORINE
     Indication: Product used for unknown indication
     Dosage: 1 MG/ML IN THE EVENING, DROPS
  2. CEFUROXIME [Suspect]
     Active Substance: CEFUROXIME
     Indication: Product used for unknown indication
     Dosage: 500 MG, MORNING AND EVENING, TABLETS
  3. DEXAMETHASONE SODIUM PHOSPHATE [Suspect]
     Active Substance: DEXAMETHASONE SODIUM PHOSPHATE
     Indication: Product used for unknown indication
     Dosage: MORNING AND EVENING, DROPS
  4. PHENPROCOUMON [Concomitant]
     Active Substance: PHENPROCOUMON
     Dosage: 3 MG, 1-0-0-0, TABLETS
  5. PANTOPRAZOLE SODIUM [Concomitant]
     Active Substance: PANTOPRAZOLE SODIUM
     Dosage: 40 MG, 1-0-0-0, TABLETS
  6. LATANOPROST [Concomitant]
     Active Substance: LATANOPROST
     Dosage: 50 ?G/ML, 0-0-0-1, DROPS
  7. AMLODIPINE BESYLATE [Concomitant]
     Active Substance: AMLODIPINE BESYLATE
     Dosage: 5 MG, 0-0-1-0, TABLETS
  8. RANEXA [Concomitant]
     Active Substance: RANOLAZINE
     Dosage: 375 MG, 1-0-1-0, TABLETS
  9. TORSEMIDE [Concomitant]
     Active Substance: TORSEMIDE
     Dosage: 2.5 MG, 1-0-0-0, TABLETS
  10. METAMIZOL [Concomitant]
     Active Substance: METAMIZOLE SODIUM
     Dosage: 500 MG/ML, NEEDS, DROPS
  11. Dorzolamide HCl / Timolol maleate (manufacturer unknown) [Concomitant]
     Dosage: 20|5 MG/ML, 1-0-1-0, DROPS
  12. ATORVASTATIN [Concomitant]
     Active Substance: ATORVASTATIN
     Dosage: 20 MG, 0-0-1-0, TABLETS
  13. TAMSULOSIN [Concomitant]
     Active Substance: TAMSULOSIN
     Dosage: 0.4 MG, 0-0-1-0, RETARD-KAPSELN

REACTIONS (5)
  - Nocturia [Unknown]
  - Pyrexia [Unknown]
  - Urosepsis [Unknown]
  - Product administration error [Unknown]
  - Product administration error [Unknown]

NARRATIVE: CASE EVENT DATE: 20200209
